FAERS Safety Report 12211566 (Version 1)
Quarter: 2016Q1

REPORT INFORMATION
  Report Type: Report from Study
  Country: US (occurrence: US)
  Receive Date: 20160325
  Receipt Date: 20160325
  Transmission Date: 20160526
  Serious: Yes (Hospitalization, Other)
  Sender: FDA-Public Use
  Company Number: US-AMGEN-USASL2016026823

PATIENT
  Age: 74 Year
  Sex: Female

DRUGS (1)
  1. REPATHA [Suspect]
     Active Substance: EVOLOCUMAB
     Indication: HYPERCHOLESTEROLAEMIA
     Dosage: 140 MG, Q2WK
     Route: 065
     Dates: start: 201601, end: 201602

REACTIONS (20)
  - Diarrhoea [Unknown]
  - Malaise [Not Recovered/Not Resolved]
  - Rhinitis [Not Recovered/Not Resolved]
  - Musculoskeletal pain [Unknown]
  - Influenza [Unknown]
  - Rash generalised [Not Recovered/Not Resolved]
  - Cholecystectomy [Unknown]
  - Adverse drug reaction [Unknown]
  - Headache [Unknown]
  - Dizziness [Unknown]
  - Squamous cell carcinoma [Unknown]
  - Nasopharyngitis [Recovered/Resolved]
  - Sinusitis [Unknown]
  - Rhinorrhoea [Unknown]
  - Pruritus [Unknown]
  - Myalgia [Unknown]
  - Upper respiratory tract infection [Not Recovered/Not Resolved]
  - Bronchitis viral [Unknown]
  - Nasal congestion [Recovered/Resolved]
  - Back pain [Unknown]

NARRATIVE: CASE EVENT DATE: 2016
